FAERS Safety Report 7559683-X (Version None)
Quarter: 2011Q2

REPORT INFORMATION
  Report Type: 
  Country: None (occurrence: None)
  Receive Date: 20110621
  Receipt Date: 20110608
  Transmission Date: 20111010
  Serious: Yes (Hospitalization)
  Sender: FDA-Public Use
  Company Number: US-CELGENEUS-163-21880-11061298

PATIENT
  Sex: Male
  Weight: 93.3 kg

DRUGS (8)
  1. BENAZEPRIL HYDROCHLORIDE [Concomitant]
     Route: 065
  2. ELIGARD [Concomitant]
     Route: 065
  3. AMLODIPINE BESYLATE [Concomitant]
     Route: 065
  4. WARFARIN SODIUM [Concomitant]
     Route: 065
  5. FINASTERIDE [Concomitant]
     Route: 065
  6. REVLIMID [Suspect]
     Indication: PROSTATE CANCER
     Dosage: 25 MILLIGRAM
     Route: 048
     Dates: start: 20101229, end: 20110517
  7. AVELOX [Concomitant]
     Route: 065
  8. CARDURA [Concomitant]
     Route: 065

REACTIONS (2)
  - HAEMATURIA [None]
  - INTERNATIONAL NORMALISED RATIO INCREASED [None]
